FAERS Safety Report 7139411-2 (Version None)
Quarter: 2010Q4

REPORT INFORMATION
  Report Type: 
  Country: None (occurrence: None)
  Receive Date: 20101206
  Receipt Date: 20101118
  Transmission Date: 20110411
  Serious: Yes (Other)
  Sender: FDA-Public Use
  Company Number: US-PFIZER INC-2010155596

PATIENT
  Age: 29 Year
  Sex: Female
  Weight: 56.689 kg

DRUGS (2)
  1. ADVIL [Suspect]
     Indication: TOOTHACHE
     Dosage: Q2H
     Route: 048
     Dates: start: 20101117
  2. LORTAB [Concomitant]

REACTIONS (3)
  - ABDOMINAL PAIN [None]
  - LIVER DISORDER [None]
  - OVERDOSE [None]
